FAERS Safety Report 9288522 (Version 2)
Quarter: 2013Q2

REPORT INFORMATION
  Report Type: Spontaneous
  Country: US (occurrence: US)
  Receive Date: 20130514
  Receipt Date: 20130605
  Transmission Date: 20140414
  Serious: Yes (Life-Threatening, Hospitalization, Disabling)
  Sender: FDA-Public Use
  Company Number: US-009507513-1305USA004977

PATIENT
  Age: 63 Year
  Sex: Female

DRUGS (2)
  1. ZETIA [Suspect]
     Dosage: 1 TABLET ONCE DAILY
     Route: 048
     Dates: start: 201211, end: 2013
  2. BROMOCRIPTINE [Concomitant]

REACTIONS (1)
  - Interstitial lung disease [Recovering/Resolving]
